FAERS Safety Report 18804844 (Version 1)
Quarter: 2021Q1

REPORT INFORMATION
  Report Type: Spontaneous
  Country: US (occurrence: US)
  Receive Date: 20210129
  Receipt Date: 20210129
  Transmission Date: 20210419
  Serious: No
  Sender: FDA-Public Use
  Company Number: US-ASTRAZENECA-2021A016399

PATIENT

DRUGS (1)
  1. FARXIGA [Suspect]
     Active Substance: DAPAGLIFLOZIN PROPANEDIOL
     Indication: DIABETES MELLITUS
     Dosage: DOSE UNKNOWN
     Route: 048

REACTIONS (5)
  - Heart rate decreased [Unknown]
  - Hypotension [Unknown]
  - Oedema [Unknown]
  - Drug resistance [Unknown]
  - Blood pressure fluctuation [Unknown]
